FAERS Safety Report 9006832 (Version 1)
Quarter: 2013Q1

REPORT INFORMATION
  Report Type: Spontaneous
  Country: US (occurrence: US)
  Receive Date: 20130110
  Receipt Date: 20130110
  Transmission Date: 20140127
  Serious: Yes (Hospitalization, Other)
  Sender: FDA-Public Use
  Company Number: US-PFIZER INC-2013009257

PATIENT
  Age: 72 Year
  Sex: Female
  Weight: 106 kg

DRUGS (12)
  1. XALATAN [Suspect]
     Indication: GLAUCOMA
     Dosage: UNK, DAILY
     Route: 047
     Dates: start: 2007
  2. METFORMIN [Concomitant]
     Indication: DIABETES MELLITUS
     Dosage: 1000 MG, 2X/DAY
  3. INSULIN [Concomitant]
     Indication: DIABETES MELLITUS
     Dosage: 50 UNITS AT ONE TIME AND 35 UNITS ANOTHER TIME
  4. LIRAGLUTIDE (NN2211) [Concomitant]
     Indication: DIABETES MELLITUS
     Dosage: 1.2 IU, DAILY
  5. CLOPIDOGREL BISULFATE [Concomitant]
     Indication: CARDIAC DISORDER
     Dosage: 75 MG, DAILY
  6. CLOPIDOGREL BISULFATE [Concomitant]
     Indication: HYPERTENSION
  7. BYSTOLIC [Concomitant]
     Indication: CARDIAC DISORDER
     Dosage: 10 MG, DAILY
  8. BYSTOLIC [Concomitant]
     Indication: HYPERTENSION
  9. BENICAR HCT [Concomitant]
     Indication: CARDIAC DISORDER
     Dosage: 40/12.5, MG
  10. BENICAR HCT [Concomitant]
     Indication: HYPERTENSION
  11. ACETYLSALICYLIC ACID [Concomitant]
     Indication: CARDIAC DISORDER
     Dosage: 325 MG, DAILY
  12. SIMVASTATIN [Concomitant]
     Indication: BLOOD CHOLESTEROL INCREASED
     Dosage: 80 MG, DAILY

REACTIONS (1)
  - Arthropathy [Unknown]
